FAERS Safety Report 12885826 (Version 1)
Quarter: 2016Q4

REPORT INFORMATION
  Report Type: Spontaneous
  Country: US (occurrence: US)
  Receive Date: 20161026
  Receipt Date: 20161026
  Transmission Date: 20170207
  Serious: No
  Sender: FDA-Public Use
  Company Number: None

PATIENT

DRUGS (2)
  1. VALPROATE SODIUM. [Suspect]
     Active Substance: VALPROATE SODIUM
     Dosage: INJECTION 500 MG/5 ML SINGLE USE
  2. LEVETIRACETAM. [Suspect]
     Active Substance: LEVETIRACETAM
     Dosage: INJECTION 500 MG PER 5 ML SINGLE USE

REACTIONS (2)
  - Intercepted drug dispensing error [None]
  - Product packaging confusion [None]
